FAERS Safety Report 9350163 (Version 1)
Quarter: 2013Q2

REPORT INFORMATION
  Report Type: Spontaneous
  Country: US (occurrence: US)
  Receive Date: 20130617
  Receipt Date: 20130617
  Transmission Date: 20140414
  Serious: Yes (Hospitalization, Other)
  Sender: FDA-Public Use
  Company Number: US-ROCHE-1235910

PATIENT
  Age: 19 Year
  Sex: Male
  Weight: 86.26 kg

DRUGS (3)
  1. ACCUTANE [Suspect]
     Indication: ACNE
     Route: 065
  2. AMNESTEEM [Suspect]
     Indication: ACNE
     Route: 065
     Dates: start: 20061016, end: 20070203
  3. SOTRET [Suspect]
     Indication: ACNE
     Route: 065
     Dates: start: 20070129

REACTIONS (8)
  - Colitis ulcerative [Unknown]
  - Inflammatory bowel disease [Unknown]
  - Crohn^s disease [Unknown]
  - Anxiety [Unknown]
  - Large intestinal ulcer [Unknown]
  - Depression [Unknown]
  - Dry skin [Unknown]
  - Lip dry [Unknown]
